FAERS Safety Report 26058606 (Version 1)
Quarter: 2025Q4

REPORT INFORMATION
  Report Type: Spontaneous
  Country: CA (occurrence: CA)
  Receive Date: 20251118
  Receipt Date: 20251118
  Transmission Date: 20260117
  Serious: Yes (Hospitalization, Other)
  Sender: CHEPLAPHARM
  Company Number: CA-CHEPLA-2025013038

PATIENT
  Age: 6 Decade
  Sex: Male

DRUGS (7)
  1. CAPECITABINE [Suspect]
     Active Substance: CAPECITABINE
     Indication: Colon cancer stage III
     Dosage: CAPOX REGIMEN
  2. OXALIPLATIN [Suspect]
     Active Substance: OXALIPLATIN
     Indication: Colon cancer stage III
     Dosage: CAPOX REGIMEN
  3. VORTIOXETINE [Concomitant]
     Active Substance: VORTIOXETINE
     Indication: Nausea
     Dosage: DAILY DOSE: 20 MILLIGRAM
  4. VORTIOXETINE [Concomitant]
     Active Substance: VORTIOXETINE
     Indication: Depression
     Dosage: DAILY DOSE: 20 MILLIGRAM
  5. ESCITALOPRAM [Concomitant]
     Active Substance: ESCITALOPRAM OXALATE
     Indication: Depression
     Dosage: DAILY DOSE: 20 MILLIGRAM
  6. BUPROPION [Concomitant]
     Active Substance: BUPROPION
     Indication: Depression
     Dosage: DAILY DOSE: 300 MILLIGRAM
  7. COVID- 19 [Concomitant]

REACTIONS (7)
  - Hypothyroidism [Unknown]
  - Hallucination, visual [Recovered/Resolved]
  - Neuralgia [Recovering/Resolving]
  - Central pain syndrome [Recovering/Resolving]
  - COVID-19 [Unknown]
  - Axonal neuropathy [Recovering/Resolving]
  - Hypotension [Recovered/Resolved]
